FAERS Safety Report 9034591 (Version 1)
Quarter: 2013Q1

REPORT INFORMATION
  Report Type: Spontaneous
  Country: US (occurrence: None)
  Receive Date: 20130115
  Receipt Date: 20130115
  Transmission Date: 20140127
  Serious: Yes (Other)
  Sender: FDA-Public Use
  Company Number: IT-ACCORD-015942

PATIENT
  Age: 32 Year
  Sex: Female
  Weight: 63 kg

DRUGS (7)
  1. DOCETAXEL (DOCETAXEL) [Suspect]
     Indication: BREAST CANCER
     Dosage: 1.0CYCLICAL
     Route: 042
     Dates: start: 20121121, end: 20121121
  2. FARMORUBICINA [Suspect]
     Indication: BREAST CANCER
     Dosage: 1.0CYCLICAL
     Route: 042
     Dates: start: 20121121, end: 20121121
  3. ENDOXAN(ENDOXAN) [Suspect]
     Indication: BREAST CANCER
     Dosage: 1.0CYCLICAL
     Route: 042
     Dates: start: 20121121, end: 20121121
  4. RANIDIL (RANIDIL) [Concomitant]
  5. ONDANSETRON (ONDANSETRON) [Concomitant]
  6. CHLORPHENAMINE (CHLORPHENAMINE) [Concomitant]
  7. SOLDESAM (SOLDESAM) [Concomitant]

REACTIONS (8)
  - Tachycardia [None]
  - Bone pain [None]
  - Abdominal pain [None]
  - Conjunctivitis [None]
  - Eye pain [None]
  - Headache [None]
  - Lymphadenitis [None]
  - Oesophageal pain [None]
